FAERS Safety Report 11337830 (Version 1)
Quarter: 2015Q3

REPORT INFORMATION
  Report Type: Spontaneous
  Country: US (occurrence: US)
  Receive Date: 20150803
  Receipt Date: 20150803
  Transmission Date: 20151125
  Serious: No
  Sender: FDA-Public Use
  Company Number: US-ELI_LILLY_AND_COMPANY-US201002001274

PATIENT
  Age: 17 Year
  Sex: Female

DRUGS (3)
  1. ZYPREXA [Suspect]
     Active Substance: OLANZAPINE
     Indication: DEPRESSION
     Dosage: 2.5 MG, DAILY (1/D)
     Dates: start: 200905, end: 200911
  2. ZYPREXA ZYDIS [Suspect]
     Active Substance: OLANZAPINE
     Indication: DEPRESSION
     Dosage: 5 MG, DAILY (1/D)
     Dates: start: 200903, end: 200905
  3. ZYPREXA [Suspect]
     Active Substance: OLANZAPINE
     Dosage: 10 MG, DAILY (1/D)
     Dates: start: 200901, end: 200903

REACTIONS (7)
  - Vomiting [Not Recovered/Not Resolved]
  - Intentional product misuse [Unknown]
  - Gastroenteritis viral [Not Recovered/Not Resolved]
  - Nausea [Not Recovered/Not Resolved]
  - Gastrointestinal disorder [Unknown]
  - Disturbance in attention [Unknown]
  - Depersonalisation [Unknown]

NARRATIVE: CASE EVENT DATE: 200901
